FAERS Safety Report 8062768-5 (Version None)
Quarter: 2012Q1

REPORT INFORMATION
  Report Type: 
  Country: None (occurrence: None)
  Receive Date: 20120106
  Receipt Date: 20111214
  Transmission Date: 20120608
  Serious: Yes (Other)
  Sender: FDA-Public Use
  Company Number: 2011030212

PATIENT
  Age: 56 Year
  Sex: Male
  Weight: 70.3075 kg

DRUGS (10)
  1. ZEMAIRA [Suspect]
  2. ZEMAIRA [Suspect]
     Indication: OBSTRUCTIVE AIRWAYS DISORDER
     Dosage: (INTRAVENOUS (NOT OTHERWISE SPECIFIED)), (60 MG/KG 1X/WEEK, APPROX. 30-60 MINUTES; 0.08 ML/KG/MIN (5
     Route: 042
     Dates: start: 20110325
  3. ZEMAIRA [Suspect]
     Indication: OBSTRUCTIVE AIRWAYS DISORDER
     Dosage: (INTRAVENOUS (NOT OTHERWISE SPECIFIED)), (60 MG/KG 1X/WEEK, APPROX. 30-60 MINUTES; 0.08 ML/KG/MIN (5
     Route: 042
     Dates: start: 20111104, end: 20111104
  4. ZEMAIRA [Suspect]
     Indication: OBSTRUCTIVE AIRWAYS DISORDER
     Dosage: (INTRAVENOUS (NOT OTHERWISE SPECIFIED)), (60 MG/KG 1X/WEEK, APPROX. 30-60 MINUTES; 0.08 ML/KG/MIN (5
     Route: 042
     Dates: start: 20110101
  5. SYMBICORT [Concomitant]
  6. DALIRESP [Concomitant]
  7. SPIRIVA [Concomitant]
  8. ZEMAIRA [Suspect]
  9. PROVENTIL [Concomitant]
  10. MUCINEX [Concomitant]

REACTIONS (8)
  - CHEST X-RAY ABNORMAL [None]
  - INFUSION RELATED REACTION [None]
  - DIZZINESS [None]
  - MYALGIA [None]
  - SYNCOPE [None]
  - BONE PAIN [None]
  - LOSS OF CONSCIOUSNESS [None]
  - FEELING ABNORMAL [None]
